FAERS Safety Report 9857614 (Version 2)
Quarter: 2014Q1

REPORT INFORMATION
  Report Type: Spontaneous
  Country: DZ (occurrence: DZ)
  Receive Date: 20140131
  Receipt Date: 20140131
  Transmission Date: 20141002
  Serious: Yes (Hospitalization)
  Sender: FDA-Public Use
  Company Number: DZ-BIOGENIDEC-2013BI109537

PATIENT
  Age: 24 Year
  Sex: Female
  Weight: 43 kg

DRUGS (1)
  1. AVONEX [Suspect]
     Indication: RELAPSING-REMITTING MULTIPLE SCLEROSIS
     Route: 030
     Dates: start: 2009, end: 20131018

REACTIONS (1)
  - Myasthenia gravis [Not Recovered/Not Resolved]
